FAERS Safety Report 21361138 (Version 11)
Quarter: 2023Q1

REPORT INFORMATION
  Report Type: Report from Study
  Country: US (occurrence: US)
  Receive Date: 20220921
  Receipt Date: 20230221
  Transmission Date: 20230418
  Serious: Yes (Other)
  Sender: FDA-Public Use
  Company Number: US-NOVARTISTESTPH-NVSC2022US212555

PATIENT
  Age: 43 Year
  Sex: Female

DRUGS (1)
  1. KESIMPTA [Suspect]
     Active Substance: OFATUMUMAB
     Indication: Product used for unknown indication
     Dosage: UNK UNK, QMO
     Route: 065
     Dates: start: 20220919

REACTIONS (29)
  - Optic neuritis [Recovering/Resolving]
  - Condition aggravated [Recovering/Resolving]
  - Feeling drunk [Unknown]
  - Hyperhidrosis [Unknown]
  - Contusion [Unknown]
  - Depressed mood [Unknown]
  - Crying [Recovered/Resolved]
  - Lethargy [Unknown]
  - Ocular discomfort [Unknown]
  - Oropharyngeal discomfort [Unknown]
  - Ear discomfort [Unknown]
  - Pain in extremity [Unknown]
  - Joint swelling [Unknown]
  - Pruritus [Unknown]
  - Temperature intolerance [Unknown]
  - Erythema [Unknown]
  - Hypoaesthesia [Unknown]
  - Paraesthesia [Recovered/Resolved]
  - Neuralgia [Unknown]
  - Burning sensation [Unknown]
  - Memory impairment [Unknown]
  - Ocular icterus [Unknown]
  - Emotional disorder [Unknown]
  - Discomfort [Unknown]
  - Blood glucose increased [Unknown]
  - Back pain [Unknown]
  - Fatigue [Unknown]
  - Chills [Unknown]
  - Injection site pain [Unknown]

NARRATIVE: CASE EVENT DATE: 20220919
